FAERS Safety Report 17758694 (Version 2)
Quarter: 2020Q2

REPORT INFORMATION
  Report Type: Report from Study
  Country: AR (occurrence: AR)
  Receive Date: 20200508
  Receipt Date: 20200515
  Transmission Date: 20200714
  Serious: Yes (Life-Threatening, Other)
  Sender: FDA-Public Use
  Company Number: AR-EMD SERONO-9161357

PATIENT
  Sex: Female

DRUGS (1)
  1. SAIZEN [Suspect]
     Active Substance: SOMATROPIN
     Indication: TURNER^S SYNDROME
     Route: 058
     Dates: start: 20100705, end: 202001

REACTIONS (6)
  - Condition aggravated [Unknown]
  - Total lung capacity decreased [Unknown]
  - Therapeutic response decreased [Recovered/Resolved]
  - Lung disorder [Unknown]
  - Scoliosis [Unknown]
  - Loss of personal independence in daily activities [Unknown]

NARRATIVE: CASE EVENT DATE: 2016
